FAERS Safety Report 24753597 (Version 1)
Quarter: 2024Q4

REPORT INFORMATION
  Report Type: Spontaneous
  Country: ES (occurrence: ES)
  Receive Date: 20241219
  Receipt Date: 20241219
  Transmission Date: 20250115
  Serious: Yes (Hospitalization, Other)
  Sender: RANBAXY
  Company Number: ES-AEMPS-1592050

PATIENT
  Age: 28 Month
  Sex: Male
  Weight: 72.5 kg

DRUGS (3)
  1. LORATADINE [Interacting]
     Active Substance: LORATADINE
     Indication: Product used for unknown indication
     Dosage: 100 MILLIGRAM, TOTAL 1, 100MG IN A SINGLE DOSE
     Route: 048
     Dates: start: 20240519, end: 20240519
  2. PAROXETINE [Interacting]
     Active Substance: PAROXETINE
     Indication: Product used for unknown indication
     Dosage: 200MG IN A SINGLE DOSE
     Route: 048
     Dates: start: 20240519, end: 20240519
  3. ALPRAZOLAM [Interacting]
     Active Substance: ALPRAZOLAM
     Indication: Product used for unknown indication
     Dosage: 10MG IN A SINGLE DOSE.
     Route: 048
     Dates: start: 20240519, end: 20240519

REACTIONS (2)
  - Suicide attempt [Unknown]
  - Depressed level of consciousness [Recovered/Resolved]

NARRATIVE: CASE EVENT DATE: 20240519
